FAERS Safety Report 8228831-0 (Version None)
Quarter: 2012Q1

REPORT INFORMATION
  Report Type: 
  Country: None (occurrence: None)
  Receive Date: 20120322
  Receipt Date: 20120223
  Transmission Date: 20120608
  Serious: Yes (Hospitalization)
  Sender: FDA-Public Use
  Company Number: JP-GLAXOSMITHKLINE-B0784007A

PATIENT
  Sex: Male
  Weight: 52 kg

DRUGS (5)
  1. AMARYL [Concomitant]
     Dosage: 1MG PER DAY
     Route: 048
  2. VALTREX [Suspect]
     Indication: HERPES ZOSTER
     Dosage: 3000MG PER DAY
     Route: 048
     Dates: start: 20120210, end: 20120214
  3. LANSOPRAZOLE [Concomitant]
     Dosage: 15MG PER DAY
     Route: 048
     Dates: start: 20120127, end: 20120229
  4. VICCLOX [Suspect]
     Indication: HERPES ZOSTER
     Route: 042
     Dates: end: 20120309
  5. MIYA BM [Concomitant]
     Dosage: 3G PER DAY
     Route: 048
     Dates: start: 20120127, end: 20120229

REACTIONS (4)
  - ALANINE AMINOTRANSFERASE INCREASED [None]
  - ASPARTATE AMINOTRANSFERASE INCREASED [None]
  - HEPATIC FUNCTION ABNORMAL [None]
  - HEPATIC STEATOSIS [None]
